FAERS Safety Report 11281255 (Version 1)
Quarter: 2015Q3

REPORT INFORMATION
  Report Type: Spontaneous
  Country: US (occurrence: US)
  Receive Date: 20150717
  Receipt Date: 20150717
  Transmission Date: 20151125
  Serious: No
  Sender: FDA-Public Use
  Company Number: US-GLAXOSMITHKLINE-US2015GSK083606

PATIENT
  Sex: Male
  Weight: 108.84 kg

DRUGS (4)
  1. MEKINIST [Suspect]
     Active Substance: TRAMETINIB DIMETHYL SULFOXIDE
     Indication: MALIGNANT MELANOMA
     Dosage: 2 MG, QD
     Dates: start: 20150504
  2. TAFINLAR [Suspect]
     Active Substance: DABRAFENIB MESYLATE
     Indication: MALIGNANT MELANOMA
     Dosage: 75 MG, BID
     Dates: start: 20150504
  3. NAPROSYN [Concomitant]
     Active Substance: NAPROXEN
  4. SIMVASTATIN. [Concomitant]
     Active Substance: SIMVASTATIN

REACTIONS (5)
  - Weight decreased [Unknown]
  - Joint swelling [Unknown]
  - Nausea [Unknown]
  - Pruritus [Unknown]
  - Memory impairment [Not Recovered/Not Resolved]
